FAERS Safety Report 4916936-9 (Version None)
Quarter: 2006Q1

REPORT INFORMATION
  Report Type: 
  Country: None (occurrence: None)
  Receive Date: 20060221
  Receipt Date: 20051003
  Transmission Date: 20060701
  Serious: Yes (Hospitalization, Other)
  Sender: FDA-Public Use
  Company Number: PHEH2005US10976

PATIENT
  Age: 50 Year
  Sex: Female

DRUGS (4)
  1. ZOMETA [Suspect]
  2. AREDIA [Suspect]
  3. TAXOL [Concomitant]
  4. ARIMIDEX [Concomitant]

REACTIONS (27)
  - ARTIFICIAL CROWN PROCEDURE [None]
  - BIOPSY BONE ABNORMAL [None]
  - BONE DEBRIDEMENT [None]
  - BONE DISORDER [None]
  - DENTAL OPERATION [None]
  - DYSPHAGIA [None]
  - ENDODONTIC PROCEDURE [None]
  - FISTULA [None]
  - FISTULA REPAIR [None]
  - GINGIVAL DISORDER [None]
  - GRAFT COMPLICATION [None]
  - HYPERBARIC OXYGEN THERAPY [None]
  - MASTICATION DISORDER [None]
  - ORAL DISCHARGE [None]
  - ORAL PAIN [None]
  - OSTECTOMY [None]
  - OSTEOMYELITIS [None]
  - OSTEONECROSIS [None]
  - PRIMARY SEQUESTRUM [None]
  - PROSTHESIS IMPLANTATION [None]
  - SPEECH DISORDER [None]
  - TOOTH ABSCESS [None]
  - TOOTH DISORDER [None]
  - TOOTH EXTRACTION [None]
  - TOOTH INFECTION [None]
  - TOOTHACHE [None]
  - WOUND DEHISCENCE [None]
